FAERS Safety Report 9136846 (Version 1)
Quarter: 2013Q1

REPORT INFORMATION
  Report Type: Spontaneous
  Country: US (occurrence: US)
  Receive Date: 20130304
  Receipt Date: 20130304
  Transmission Date: 20140127
  Serious: No
  Sender: FDA-Public Use
  Company Number: US-ABBOTT-12P-163-0941238-00

PATIENT
  Sex: Male
  Weight: 127.12 kg

DRUGS (8)
  1. ANDROGEL 1% [Suspect]
     Indication: BLOOD TESTOSTERONE DECREASED
     Dates: start: 2010
  2. TOPAMAX [Concomitant]
     Indication: NERVOUS SYSTEM DISORDER
  3. KLONOPIN [Concomitant]
     Indication: NERVOUS SYSTEM DISORDER
  4. AMITRIPTYLINE [Concomitant]
     Indication: SLEEP DISORDER
  5. TRAMADOL [Concomitant]
     Indication: PAIN
  6. METHOCARBAMOL [Concomitant]
     Indication: MUSCLE RELAXANT THERAPY
  7. FENOFIBRATE [Concomitant]
     Indication: BLOOD CHOLESTEROL INCREASED
  8. ATENOLOL [Concomitant]
     Indication: HYPERTENSION

REACTIONS (1)
  - Blood testosterone decreased [Unknown]
